FAERS Safety Report 5220230-9 (Version None)
Quarter: 2007Q1

REPORT INFORMATION
  Report Type: 
  Country: None (occurrence: None)
  Receive Date: 20061208
  Receipt Date: 20060810
  Transmission Date: 20070707
  Serious: Yes (Other)
  Sender: FDA-Public Use
  Company Number: 2006097824

PATIENT
  Age: 44 Year
  Sex: Male

DRUGS (3)
  1. VIAGRA [Suspect]
     Indication: ERECTILE DYSFUNCTION
     Dates: end: 20060101
  2. CELEXA [Concomitant]
  3. WELLBUTRIN [Concomitant]

REACTIONS (1)
  - PAINFUL ERECTION [None]
